FAERS Safety Report 9104324 (Version 1)
Quarter: 2013Q1

REPORT INFORMATION
  Report Type: Spontaneous
  Country: GB (occurrence: GB)
  Receive Date: 20130220
  Receipt Date: 20130220
  Transmission Date: 20140127
  Serious: Yes (Other)
  Sender: FDA-Public Use
  Company Number: PHHY2013GB014635

PATIENT
  Age: 67 Year
  Sex: Female
  Weight: 61 kg

DRUGS (1)
  1. SIMVASTATIN [Suspect]
     Dosage: 40 MG, QD
     Dates: start: 20121121, end: 20130117

REACTIONS (5)
  - Abnormal dreams [Unknown]
  - Lethargy [Unknown]
  - Sleep disorder [Unknown]
  - Fatigue [Unknown]
  - Depressed mood [Unknown]
